FAERS Safety Report 4772767-4 (Version None)
Quarter: 2005Q3

REPORT INFORMATION
  Report Type: 
  Country: None (occurrence: None)
  Receive Date: 20050919
  Receipt Date: 20050915
  Transmission Date: 20060218
  Serious: Yes (Other)
  Sender: FDA-Public Use
  Company Number: US-GLAXOSMITHKLINE-A0574433A

PATIENT
  Sex: Male

DRUGS (5)
  1. CHLORPROMAZINE [Suspect]
     Indication: EARLY MORNING AWAKENING
     Dosage: 20MG PER DAY
     Route: 048
  2. ZETIA [Concomitant]
  3. LITHIUM [Concomitant]
  4. ASPIRIN [Concomitant]
  5. PROPRANOLOL [Concomitant]

REACTIONS (3)
  - ALANINE AMINOTRANSFERASE INCREASED [None]
  - ASPARTATE AMINOTRANSFERASE INCREASED [None]
  - HEPATIC ENZYME INCREASED [None]
